FAERS Safety Report 17469676 (Version 1)
Quarter: 2020Q1

REPORT INFORMATION
  Report Type: Report from Study
  Country: MX (occurrence: MX)
  Receive Date: 20200227
  Receipt Date: 20200227
  Transmission Date: 20200409
  Serious: Yes (Death, Other)
  Sender: FDA-Public Use
  Company Number: NVSC2020MX052445

PATIENT
  Age: 11 Year
  Sex: Female
  Weight: 27 kg

DRUGS (6)
  1. DABRAFENIB [Suspect]
     Active Substance: DABRAFENIB
     Dosage: 150 MG
     Route: 048
     Dates: start: 20190913
  2. LEVETIRACETAM. [Concomitant]
     Active Substance: LEVETIRACETAM
     Indication: SEIZURE
     Dosage: 350 MG, Q12H
     Route: 065
     Dates: start: 20180601
  3. ONDANSETRON [Concomitant]
     Active Substance: ONDANSETRON
     Indication: PEPTIC ULCER
     Dosage: 8 MG, Q24H
     Route: 065
     Dates: start: 20180601
  4. TRAMADOL/ACETAMINOPHEN [Concomitant]
     Active Substance: ACETAMINOPHEN\TRAMADOL
     Indication: PAIN
     Dosage: 37.5 MG, Q12H
     Route: 065
     Dates: start: 20190701
  5. BUPRENORPHINE. [Concomitant]
     Active Substance: BUPRENORPHINE
     Indication: PAIN
     Dosage: 30 MG
     Route: 065
     Dates: start: 20190501
  6. DABRAFENIB [Suspect]
     Active Substance: DABRAFENIB
     Indication: GLIOBLASTOMA
     Dosage: 150 MG
     Route: 048
     Dates: start: 20190701

REACTIONS (7)
  - Respiratory distress [Unknown]
  - Respiratory arrest [Unknown]
  - Glioblastoma [Unknown]
  - Death [Fatal]
  - Cardiac arrest [Unknown]
  - Dyspnoea [Unknown]
  - Malignant neoplasm progression [Unknown]

NARRATIVE: CASE EVENT DATE: 20190916
